FAERS Safety Report 10545752 (Version 1)
Quarter: 2014Q4

REPORT INFORMATION
  Report Type: Report from Study
  Country: US (occurrence: US)
  Receive Date: 20141027
  Receipt Date: 20141027
  Transmission Date: 20150529
  Serious: Yes (Other)
  Sender: FDA-Public Use
  Company Number: US-SA-2014SA144406

PATIENT
  Age: 59 Year
  Sex: Male

DRUGS (1)
  1. LANTUS [Suspect]
     Active Substance: INSULIN GLARGINE
     Indication: TYPE 2 DIABETES MELLITUS
     Dosage: DOSE:60 UNIT(S)
     Route: 065
     Dates: start: 2012

REACTIONS (5)
  - Blood glucose decreased [Unknown]
  - Cushing^s syndrome [Unknown]
  - Hyperhidrosis [Unknown]
  - Anxiety [Unknown]
  - Off label use [Unknown]

NARRATIVE: CASE EVENT DATE: 2012
